FAERS Safety Report 21526569 (Version 3)
Quarter: 2023Q4

REPORT INFORMATION
  Report Type: Spontaneous
  Country: US (occurrence: US)
  Receive Date: 20221031
  Receipt Date: 20231124
  Transmission Date: 20240110
  Serious: No
  Sender: FDA-Public Use
  Company Number: US-BRISTOL-MYERS SQUIBB COMPANY-2022-128481

PATIENT
  Age: 68 Year
  Sex: Female

DRUGS (3)
  1. REVLIMID [Suspect]
     Active Substance: LENALIDOMIDE
     Indication: Plasma cell myeloma
     Dosage: FREQ: DAILY?EXPIRATION DATE: 08/24
     Route: 048
     Dates: start: 20201231
  2. REVLIMID [Suspect]
     Active Substance: LENALIDOMIDE
     Dosage: ONGOING
     Route: 048
     Dates: start: 202101
  3. REVLIMID [Suspect]
     Active Substance: LENALIDOMIDE
     Dosage: FREQ: DAILY?EXPIRATION DATE: 08/24
     Route: 048
     Dates: start: 20210714

REACTIONS (7)
  - Dry skin [Not Recovered/Not Resolved]
  - Diarrhoea [Unknown]
  - Nasopharyngitis [Not Recovered/Not Resolved]
  - Blister [Unknown]
  - Pruritus [Unknown]
  - Rash [Unknown]
  - White blood cell count decreased [Unknown]

NARRATIVE: CASE EVENT DATE: 20220601
